FAERS Safety Report 23543097 (Version 3)
Quarter: 2024Q1

REPORT INFORMATION
  Report Type: Report from Study
  Country: US (occurrence: US)
  Receive Date: 20240220
  Receipt Date: 20240227
  Transmission Date: 20240410
  Serious: Yes (Other)
  Sender: FDA-Public Use
  Company Number: US-AstraZeneca-CH-00564081A

PATIENT
  Age: 50 Year
  Sex: Female

DRUGS (1)
  1. STRENSIQ [Suspect]
     Active Substance: ASFOTASE ALFA
     Indication: Hypophosphatasia
     Dosage: 44 MILLIGRAM, SIX TIMES/WEEK
     Route: 058
     Dates: start: 20240120

REACTIONS (17)
  - Aortic arteriosclerosis [Unknown]
  - Skin atrophy [Unknown]
  - Product physical consistency issue [Unknown]
  - Facial asymmetry [Unknown]
  - Facial pain [Unknown]
  - Bone deformity [Unknown]
  - Skin hypertrophy [Unknown]
  - Skin tightness [Unknown]
  - Arteriosclerosis [Unknown]
  - Injection site rash [Not Recovered/Not Resolved]
  - Rash erythematous [Recovering/Resolving]
  - Papule [Recovering/Resolving]
  - Purpura [Unknown]
  - Cortisol decreased [Unknown]
  - Adrenal mass [Unknown]
  - Heart valve incompetence [Unknown]
  - Fibrous histiocytoma [Unknown]

NARRATIVE: CASE EVENT DATE: 20240120
